FAERS Safety Report 6054035-6 (Version None)
Quarter: 2009Q1

REPORT INFORMATION
  Report Type: 
  Country: None (occurrence: None)
  Receive Date: 20090123
  Receipt Date: 20090123
  Transmission Date: 20090719
  Serious: Yes (Hospitalization)
  Sender: FDA-Public Use
  Company Number: None

PATIENT
  Sex: Male
  Weight: 68.0396 kg

DRUGS (2)
  1. ASMANEX -MOMETASONE FUROATE INHALATION  220MCG NDC 0085-1341-02 SCHERI [Suspect]
     Indication: COUGH
     Dosage: 24MCG 2 TIMES DAILY PO
     Route: 048
     Dates: start: 20080805, end: 20080924
  2. FORADIL [Suspect]
     Indication: DYSPNOEA
     Dosage: 220MCG 1 TIME AT NIGHT PO
     Route: 048
     Dates: start: 20080805, end: 20080924

REACTIONS (3)
  - DYSPNOEA [None]
  - NO THERAPEUTIC RESPONSE [None]
  - THROAT TIGHTNESS [None]
